FAERS Safety Report 10018321 (Version 1)
Quarter: 2014Q1

REPORT INFORMATION
  Report Type: Spontaneous
  Country: US (occurrence: US)
  Receive Date: 20140318
  Receipt Date: 20140318
  Transmission Date: 20141002
  Serious: Yes (Hospitalization)
  Sender: FDA-Public Use
  Company Number: US-BRISTOL-MYERS SQUIBB COMPANY-20062386

PATIENT
  Sex: Male

DRUGS (4)
  1. ERBITUX [Suspect]
     Dates: start: 20140114
  2. DEPAKOTE [Concomitant]
  3. HYDROCODONE [Concomitant]
  4. ACETAMINOPHEN [Concomitant]

REACTIONS (7)
  - Blood pressure decreased [Unknown]
  - Dyspnoea [Unknown]
  - Flushing [Unknown]
  - Feeling hot [Unknown]
  - Erythema [Unknown]
  - Depressed level of consciousness [Unknown]
  - Tremor [Unknown]
